FAERS Safety Report 8136769-2 (Version None)
Quarter: 2012Q1

REPORT INFORMATION
  Report Type: 
  Country: None (occurrence: None)
  Receive Date: 20120214
  Receipt Date: 20120208
  Transmission Date: 20120608
  Serious: Yes (Hospitalization, Other)
  Sender: FDA-Public Use
  Company Number: US-BAYER-2010-001623

PATIENT
  Age: 37 Year
  Sex: Female
  Weight: 60.317 kg

DRUGS (4)
  1. LORAZEPAM [Concomitant]
     Dosage: UNK
     Dates: start: 20010101, end: 20090201
  2. IBUPROFEN [Concomitant]
     Dosage: UNK
     Dates: start: 20041101, end: 20071101
  3. YASMIN [Suspect]
     Dosage: UNK
     Dates: start: 20010601, end: 20080601
  4. DROSPIRENONE AND ETHINYL ESTRADIOL [Suspect]
     Dosage: UNK
     Dates: start: 20080701, end: 20090901

REACTIONS (2)
  - CHOLECYSTITIS CHRONIC [None]
  - GALLBLADDER DISORDER [None]
